FAERS Safety Report 8934978 (Version 1)
Quarter: 2012Q4

REPORT INFORMATION
  Report Type: 
  Country: IT (occurrence: IT)
  Receive Date: 20121129
  Receipt Date: 20121129
  Transmission Date: 20130627
  Serious: Yes (Hospitalization)
  Sender: FDA-Public Use
  Company Number: IT-BAYER-2012-124782

PATIENT
  Age: 35 Year
  Sex: Female

DRUGS (3)
  1. LASONIL [Suspect]
     Indication: BRUISE
     Dosage: 1 DF, UNK
     Route: 061
  2. LASONIL [Suspect]
     Indication: BRUISE
     Dosage: 1 DF, ONCE
     Route: 061
     Dates: start: 20121120, end: 20121120
  3. TACHIPIRINA [Concomitant]
     Dosage: Daily dose 1 g
     Dates: start: 20121120, end: 20121120

REACTIONS (12)
  - Pyrexia [Recovering/Resolving]
  - Facial pain [Recovering/Resolving]
  - Arthralgia [Recovering/Resolving]
  - Bone pain [Recovering/Resolving]
  - Oedema [Recovering/Resolving]
  - Erythema [Recovering/Resolving]
  - Lip blister [Recovering/Resolving]
  - Lip blister [Recovering/Resolving]
  - Skin warm [Recovering/Resolving]
  - Mucosal dryness [Recovering/Resolving]
  - Headache [Recovering/Resolving]
  - Erysipelas [Recovering/Resolving]
